FAERS Safety Report 18975469 (Version 2)
Quarter: 2021Q2

REPORT INFORMATION
  Report Type: Spontaneous
  Country: IN (occurrence: IN)
  Receive Date: 20210305
  Receipt Date: 20210604
  Transmission Date: 20210717
  Serious: Yes (Other)
  Sender: FDA-Public Use
  Company Number: IN-PFIZER INC-2020284124

PATIENT
  Age: 48 Year
  Sex: Male

DRUGS (2)
  1. CRIZALK [Suspect]
     Active Substance: CRIZOTINIB
     Indication: NON-SMALL CELL LUNG CANCER
     Dosage: 250 MG, 2X/DAY
     Route: 048
     Dates: start: 201809
  2. CRIZALK [Suspect]
     Active Substance: CRIZOTINIB
     Dosage: 250 MG, 2X/DAY
     Route: 048
     Dates: start: 20200914, end: 20210324

REACTIONS (12)
  - Peripheral swelling [Recovering/Resolving]
  - Dyspepsia [Unknown]
  - Blood creatinine increased [Unknown]
  - Alanine aminotransferase increased [Unknown]
  - Asthenia [Unknown]
  - Constipation [Unknown]
  - Nervousness [Unknown]
  - Neoplasm progression [Unknown]
  - Abdominal pain [Unknown]
  - Syncope [Unknown]
  - Hypothyroidism [Unknown]
  - Oedema [Unknown]
